FAERS Safety Report 9023785 (Version 1)
Quarter: 2013Q1

REPORT INFORMATION
  Report Type: Spontaneous
  Country: US (occurrence: US)
  Receive Date: 20130121
  Receipt Date: 20130121
  Transmission Date: 20140127
  Serious: No
  Sender: FDA-Public Use
  Company Number: US-PFIZER INC-2013024070

PATIENT
  Age: 59 Year
  Sex: Female
  Weight: 76.64 kg

DRUGS (2)
  1. NEURONTIN [Suspect]
     Indication: PERIPHERAL NERVE INJURY
     Dosage: 300 MG, 4X/DAY
     Dates: end: 201301
  2. PERCOCET [Concomitant]
     Indication: BACK DISORDER
     Dosage: 7.5MG TWO TO THREE TIMES A DAY, AS NEEDED

REACTIONS (1)
  - Pain in extremity [Not Recovered/Not Resolved]
